FAERS Safety Report 22098773 (Version 2)
Quarter: 2023Q2

REPORT INFORMATION
  Report Type: Spontaneous
  Country: US (occurrence: US)
  Receive Date: 20230315
  Receipt Date: 20230411
  Transmission Date: 20230721
  Serious: No
  Sender: FDA-Public Use
  Company Number: US-AMGEN-USASP2023042118

PATIENT
  Sex: Female

DRUGS (11)
  1. OTEZLA [Suspect]
     Active Substance: APREMILAST
     Indication: Psoriasis
     Dosage: 30 MILLIGRAM, BID
     Route: 048
  2. DEXAMETHASONE [Concomitant]
     Active Substance: DEXAMETHASONE
  3. ELIDEL [Concomitant]
     Active Substance: PIMECROLIMUS
     Dosage: 1 PERCENT
  4. FENTANYL [Concomitant]
     Active Substance: FENTANYL
     Dosage: 12MCG/HR
  5. HYDROCODONE BITARTRATE AND ACETAMINOPHEN [Concomitant]
     Active Substance: ACETAMINOPHEN\HYDROCODONE BITARTRATE
  6. IBUPROFEN [Concomitant]
     Active Substance: IBUPROFEN
     Dosage: 200 MILLIGRAM
  7. OMEGA 3 [Concomitant]
     Active Substance: CAPSAICIN
     Dosage: 1000 MILLIGRAM
  8. SOMA [Concomitant]
     Active Substance: CARISOPRODOL
     Dosage: 350 MILLIGRAM
  9. STOOL SOFTENER (DOCUSATE) [Concomitant]
     Active Substance: DOCUSATE
     Dosage: 50 MILLIGRAM
  10. TOPICORT [Concomitant]
     Active Substance: DESOXIMETASONE
     Dosage: 0.25 PERCENT
  11. VITAMIN D [Concomitant]
     Active Substance: VITAMIN D NOS
     Dosage: 1000 UNIT

REACTIONS (2)
  - Psoriasis [Not Recovered/Not Resolved]
  - Diarrhoea [Not Recovered/Not Resolved]
